FAERS Safety Report 5759832-X (Version None)
Quarter: 2008Q2

REPORT INFORMATION
  Report Type: 
  Country: None (occurrence: None)
  Receive Date: 20080605
  Receipt Date: 20080526
  Transmission Date: 20081010
  Serious: Yes (Hospitalization)
  Sender: FDA-Public Use
  Company Number: PHHY2008NZ08600

PATIENT
  Sex: Male
  Weight: 140 kg

DRUGS (1)
  1. CLOZARIL [Suspect]
     Indication: INCORRECT DOSE ADMINISTERED
     Dosage: 6000 - 10000 MG
     Dates: start: 20080514, end: 20080514

REACTIONS (10)
  - ASPIRATION TRACHEAL ABNORMAL [None]
  - BLOOD CULTURE POSITIVE [None]
  - EXTRASYSTOLES [None]
  - INTENTIONAL OVERDOSE [None]
  - MYOCLONUS [None]
  - NEUTROPHIL COUNT INCREASED [None]
  - SEDATION [None]
  - SUICIDE ATTEMPT [None]
  - TACHYCARDIA [None]
  - WHITE BLOOD CELL COUNT INCREASED [None]
